FAERS Safety Report 7121559-X (Version None)
Quarter: 2010Q4

REPORT INFORMATION
  Report Type: 
  Country: None (occurrence: None)
  Receive Date: 20101124
  Receipt Date: 20101111
  Transmission Date: 20110411
  Serious: Yes (Hospitalization, Other)
  Sender: FDA-Public Use
  Company Number: DE-PFIZER INC-2010151580

PATIENT
  Age: 53 Year
  Sex: Male
  Weight: 82 kg

DRUGS (7)
  1. PANTOZOL [Suspect]
     Dosage: 20 MG, 2X/DAY
     Route: 048
     Dates: start: 20100504, end: 20100608
  2. PANTOZOL [Suspect]
     Dosage: 40 MG, 1X/DAY
     Route: 048
     Dates: start: 20100609, end: 20100623
  3. HYDROXYZINE HCL [Suspect]
     Dosage: 25 MG, 1X/DAY
     Route: 048
     Dates: start: 20100608, end: 20100621
  4. ALITRETINOIN [Suspect]
     Indication: DERMATITIS ATOPIC
     Dosage: 30 MG, 1X/DAY
     Route: 048
     Dates: start: 20100616, end: 20100621
  5. CETIRIZINE [Concomitant]
     Dosage: UNK
     Route: 048
     Dates: start: 20100215, end: 20100608
  6. CETIRIZINE [Concomitant]
     Dosage: 2 DF, 2X/DAY
     Route: 048
     Dates: start: 20100609
  7. CETIRIZINE [Concomitant]
     Dosage: 1 DF, 2X/DAY
     Route: 048
     Dates: start: 20100622, end: 20100622

REACTIONS (1)
  - HEPATITIS ACUTE [None]
